FAERS Safety Report 6059425-3 (Version None)
Quarter: 2009Q1

REPORT INFORMATION
  Report Type: 
  Country: None (occurrence: None)
  Receive Date: 20090130
  Receipt Date: 20090123
  Transmission Date: 20090719
  Serious: Yes (Other)
  Sender: FDA-Public Use
  Company Number: PHHY2008JP22917

PATIENT
  Sex: Female
  Weight: 65 kg

DRUGS (1)
  1. NEORAL [Suspect]
     Indication: DERMATITIS ATOPIC
     Dosage: 125 MG/DAY
     Route: 048
     Dates: start: 20080522, end: 20080525

REACTIONS (4)
  - CYSTITIS-LIKE SYMPTOM [None]
  - ERYTHEMA [None]
  - GENERALISED OEDEMA [None]
  - PALPITATIONS [None]
